FAERS Safety Report 10052809 (Version 1)
Quarter: 2014Q1

REPORT INFORMATION
  Report Type: Spontaneous
  Country: AU (occurrence: None)
  Receive Date: 20140331
  Receipt Date: 20140331
  Transmission Date: 20141002
  Serious: Yes (Other)
  Sender: FDA-Public Use
  Company Number: AUR-APL-2013-09506

PATIENT
  Sex: 0

DRUGS (2)
  1. SIMVASTIN [Suspect]
     Indication: PRODUCT USED FOR UNKNOWN INDICATION
  2. PREGABALIN (PREGABALIN) [Suspect]
     Indication: PRODUCT USED FOR UNKNOWN INDICATION

REACTIONS (2)
  - Rhabdomyolysis [None]
  - Drug interaction [None]
